FAERS Safety Report 4420928-6 (Version None)
Quarter: 2004Q3

REPORT INFORMATION
  Report Type: 
  Country: None (occurrence: None)
  Receive Date: 20040809
  Receipt Date: 20040723
  Transmission Date: 20050211
  Serious: Yes (Death, Hospitalization)
  Sender: FDA-Public Use
  Company Number: JP-JNJFOC-20030802521

PATIENT
  Sex: Female
  Weight: 51 kg

DRUGS (9)
  1. INFLIXIMAB [Suspect]
  2. INFLIXIMAB [Suspect]
  3. INFLIXIMAB [Suspect]
  4. INFLIXIMAB [Suspect]
  5. INFLIXIMAB [Suspect]
  6. INFLIXIMAB [Suspect]
  7. INFLIXIMAB [Suspect]
  8. METHOTREXATE [Concomitant]
     Indication: RHEUMATOID ARTHRITIS
     Route: 049
  9. PREDONIN [Concomitant]
     Indication: RHEUMATOID ARTHRITIS

REACTIONS (7)
  - ACUTE RESPIRATORY DISTRESS SYNDROME [None]
  - CELLULITIS [None]
  - DIABETIC ULCER [None]
  - HERPES ZOSTER [None]
  - INGROWING NAIL [None]
  - PNEUMOCYSTIS CARINII INFECTION [None]
  - PNEUMONIA ASPIRATION [None]
